FAERS Safety Report 9263340 (Version 1)
Quarter: 2013Q2

REPORT INFORMATION
  Report Type: Spontaneous
  Country: DE (occurrence: None)
  Receive Date: 20130426
  Receipt Date: 20130426
  Transmission Date: 20140414
  Serious: Yes (Hospitalization)
  Sender: FDA-Public Use
  Company Number: DE-011477

PATIENT
  Age: 86 Year
  Sex: Male

DRUGS (5)
  1. FIRMAGON [Suspect]
     Indication: PROSTATE CANCER
     Route: 058
  2. CANDESARTAN [Concomitant]
  3. NEBILET [Concomitant]
  4. GABAPENTIN [Concomitant]
  5. PANTOZOL/10263204/ [Concomitant]

REACTIONS (2)
  - Acute myocardial infarction [None]
  - Left ventricular failure [None]
